FAERS Safety Report 12669202 (Version 1)
Quarter: 2016Q3

REPORT INFORMATION
  Report Type: Spontaneous
  Country: JP (occurrence: JP)
  Receive Date: 20160819
  Receipt Date: 20160819
  Transmission Date: 20161109
  Serious: Yes (Hospitalization)
  Sender: FDA-Public Use
  Company Number: JP-JNJFOC-20160815346

PATIENT
  Age: 63 Year
  Sex: Female

DRUGS (6)
  1. LEVOBUNOLOL [Suspect]
     Active Substance: LEVOBUNOLOL
     Indication: OPEN ANGLE GLAUCOMA
     Route: 065
  2. LATANOPROST. [Concomitant]
     Active Substance: LATANOPROST
     Indication: OPEN ANGLE GLAUCOMA
     Route: 065
  3. RISPERIDONE. [Suspect]
     Active Substance: RISPERIDONE
     Indication: SCHIZOPHRENIA
     Dosage: FOR MORE THAN 10 YEARS
     Route: 065
  4. BRINZOLAMIDE [Concomitant]
     Active Substance: BRINZOLAMIDE
     Indication: OPEN ANGLE GLAUCOMA
     Route: 065
  5. QUETIAPINE. [Suspect]
     Active Substance: QUETIAPINE
     Indication: SCHIZOPHRENIA
     Dosage: FOR 6 MONTHS
     Route: 065
  6. ARIPIPRAZOLE. [Suspect]
     Active Substance: ARIPIPRAZOLE
     Indication: SCHIZOPHRENIA
     Dosage: FOR 8 MONTHS
     Route: 065

REACTIONS (1)
  - Floppy iris syndrome [Unknown]
